FAERS Safety Report 16934279 (Version 2)
Quarter: 2019Q4

REPORT INFORMATION
  Report Type: Spontaneous
  Country: GB (occurrence: GB)
  Receive Date: 20191018
  Receipt Date: 20191029
  Transmission Date: 20200122
  Serious: Yes (Life-Threatening)
  Sender: FDA-Public Use
  Company Number: GB-ROCHE-2439203

PATIENT
  Sex: Female

DRUGS (7)
  1. OCREVUS [Suspect]
     Active Substance: OCRELIZUMAB
     Indication: RELAPSING MULTIPLE SCLEROSIS
     Route: 065
     Dates: start: 20190923, end: 20191001
  2. CLONAZEPAM. [Concomitant]
     Active Substance: CLONAZEPAM
  3. FOLIC ACID. [Concomitant]
     Active Substance: FOLIC ACID
  4. PREGABALIN. [Concomitant]
     Active Substance: PREGABALIN
  5. BACLOFEN. [Concomitant]
     Active Substance: BACLOFEN
  6. METHYLPHENIDATE. [Concomitant]
     Active Substance: METHYLPHENIDATE
  7. BETAHISTINE [Concomitant]
     Active Substance: BETAHISTINE

REACTIONS (5)
  - Anaphylactic reaction [Not Recovered/Not Resolved]
  - Hypersensitivity [Unknown]
  - Diarrhoea [Unknown]
  - Oedema peripheral [Unknown]
  - Malaise [Unknown]

NARRATIVE: CASE EVENT DATE: 20190930
